FAERS Safety Report 5845456-2 (Version None)
Quarter: 2008Q3

REPORT INFORMATION
  Report Type: 
  Country: None (occurrence: None)
  Receive Date: 20080814
  Receipt Date: 20080801
  Transmission Date: 20090109
  Serious: Yes (Hospitalization, Other)
  Sender: FDA-Public Use
  Company Number: DE-PURDUE-DEU_2008_0004504

PATIENT
  Sex: Female

DRUGS (3)
  1. OXYGESIC 10 MG [Suspect]
     Indication: DRUG DEPENDENCE
     Route: 048
     Dates: start: 20020101, end: 20070101
  2. BENZODIAZEPINE DERIVATIVES [Suspect]
  3. ALPHA-ADRENOCEPTOR BLOCKING AGENTS [Suspect]

REACTIONS (6)
  - DEPRESSION [None]
  - DRUG ABUSE [None]
  - DRUG DEPENDENCE [None]
  - GASTROINTESTINAL NECROSIS [None]
  - HYPOKALAEMIA [None]
  - UTERINE LEIOMYOMA [None]
